FAERS Safety Report 20934288 (Version 1)
Quarter: 2022Q2

REPORT INFORMATION
  Report Type: Spontaneous
  Country: US (occurrence: None)
  Receive Date: 20220607
  Receipt Date: 20220607
  Transmission Date: 20220721
  Serious: No
  Sender: FDA-Public Use
  Company Number: None

PATIENT
  Sex: Male
  Weight: 122.7 kg

DRUGS (11)
  1. TEMOZOLOMIDE [Suspect]
     Active Substance: TEMOZOLOMIDE
     Indication: Brain neoplasm malignant
     Dosage: OTHER FREQUENCY : QHS 5DAYS/28;?
     Route: 048
  2. BACTRIM DS [Concomitant]
  3. HYDROXYZINE HYDROCHLORIDE [Concomitant]
     Active Substance: HYDROXYZINE HYDROCHLORIDE
  4. IBUPROFEN [Concomitant]
     Active Substance: IBUPROFEN
  5. KEPPRA [Suspect]
     Active Substance: LEVETIRACETAM
  6. OLANZAPINE [Concomitant]
     Active Substance: OLANZAPINE
  7. OMEPRAZOLE [Concomitant]
  8. PROCHLORPERAZINE [Concomitant]
  9. PROMETHAZINE HCI [Concomitant]
  10. SENOKOT S [Concomitant]
  11. VITAMIN D3 [Concomitant]
     Active Substance: CHOLECALCIFEROL

REACTIONS (4)
  - Asthenia [None]
  - Suicidal ideation [None]
  - Nausea [None]
  - Diarrhoea [None]
